FAERS Safety Report 23336246 (Version 1)
Quarter: 2023Q4

REPORT INFORMATION
  Report Type: Spontaneous
  Country: FR (occurrence: FR)
  Receive Date: 20231225
  Receipt Date: 20231225
  Transmission Date: 20240110
  Serious: Yes (Death)
  Sender: FDA-Public Use
  Company Number: FR-JNJFOC-20231251372

PATIENT
  Age: 71 Year
  Sex: Female
  Weight: 45 kg

DRUGS (2)
  1. TECVAYLI [Suspect]
     Active Substance: TECLISTAMAB-CQYV
     Indication: Plasma cell myeloma
     Route: 065
     Dates: start: 20230911
  2. TECVAYLI [Suspect]
     Active Substance: TECLISTAMAB-CQYV
     Route: 065
     Dates: end: 20230914

REACTIONS (2)
  - Plasma cell myeloma [Fatal]
  - Adverse reaction [Fatal]
